FAERS Safety Report 7091935-2 (Version None)
Quarter: 2010Q4

REPORT INFORMATION
  Report Type: 
  Country: None (occurrence: None)
  Receive Date: 20101109
  Receipt Date: 20101029
  Transmission Date: 20110411
  Serious: Yes (Other)
  Sender: FDA-Public Use
  Company Number: US-JNJCH-2010025127

PATIENT
  Age: 50 Year
  Sex: Male
  Weight: 86.2 kg

DRUGS (4)
  1. NEOSPORIN LIP HEALTH DAILY HYDRATION THERAPY [Suspect]
     Indication: PROPHYLAXIS
     Dosage: TEXT:ONCE
     Route: 061
     Dates: start: 20101025, end: 20101025
  2. VITAMIN D [Concomitant]
     Indication: VITAMIN D DECREASED
     Dosage: TEXT:1.25MG ONCE A WEEK
     Route: 065
  3. BENAZEPRIL HYDROCHLORIDE [Concomitant]
     Indication: HYPERTENSION
     Dosage: TEXT:20-25MG ONCE DAILY
     Route: 065
  4. SIMVASTATIN [Concomitant]
     Indication: BLOOD CHOLESTEROL INCREASED
     Dosage: TEXT:40MG ONCE DAILY
     Route: 065

REACTIONS (5)
  - APPLICATION SITE PRURITUS [None]
  - EYE SWELLING [None]
  - OFF LABEL USE [None]
  - PHARYNGEAL OEDEMA [None]
  - RASH [None]
